FAERS Safety Report 14122369 (Version 2)
Quarter: 2018Q1

REPORT INFORMATION
  Report Type: Spontaneous
  Country: US (occurrence: US)
  Receive Date: 20171024
  Receipt Date: 20180123
  Transmission Date: 20180508
  Serious: No
  Sender: FDA-Public Use
  Company Number: US-IMPAX LABORATORIES, INC-2017-IPXL-02838

PATIENT
  Age: 75 Year
  Sex: Female
  Weight: 60 kg

DRUGS (8)
  1. PREMPRO [Concomitant]
     Active Substance: ESTROGENS, CONJUGATED\MEDROXYPROGESTERONE ACETATE
     Indication: MENOPAUSE
     Dosage: UNK
     Route: 065
  2. PRIMIDONE. [Concomitant]
     Active Substance: PRIMIDONE
     Indication: PARKINSON^S DISEASE
     Dosage: UNK
     Route: 065
  3. RYTARY [Suspect]
     Active Substance: CARBIDOPA\LEVODOPA
     Indication: PARKINSON^S DISEASE
     Dosage: 23.75/95 MG, 1 CAPSULE 3 TIMES DAILY
     Route: 048
     Dates: start: 201709, end: 201709
  4. RYTARY [Suspect]
     Active Substance: CARBIDOPA\LEVODOPA
     Dosage: 36.25/145 MG, 1 CAPSULE 4 TIMES DAILY
     Route: 048
     Dates: start: 20170926
  5. MIRAPEX [Concomitant]
     Active Substance: PRAMIPEXOLE DIHYDROCHLORIDE
     Indication: PARKINSON^S DISEASE
     Dosage: UNK
     Route: 065
  6. AZILECT [Concomitant]
     Active Substance: RASAGILINE MESYLATE
     Indication: PARKINSON^S DISEASE
     Dosage: UNK
     Route: 065
  7. MYRBETRIQ [Concomitant]
     Active Substance: MIRABEGRON
     Indication: URINARY INCONTINENCE
     Dosage: UNK
     Route: 065
  8. CARBIDOPA/LEVODOPA [Concomitant]
     Active Substance: CARBIDOPA\LEVODOPA
     Indication: PARKINSON^S DISEASE
     Dosage: 25/100 MG, UNK
     Route: 065

REACTIONS (7)
  - Musculoskeletal stiffness [Not Recovered/Not Resolved]
  - Treatment noncompliance [Unknown]
  - Hypokinesia [Not Recovered/Not Resolved]
  - Dysgraphia [Not Recovered/Not Resolved]
  - Asthenia [Not Recovered/Not Resolved]
  - Tremor [Not Recovered/Not Resolved]
  - Hot flush [Not Recovered/Not Resolved]

NARRATIVE: CASE EVENT DATE: 201709
